FAERS Safety Report 14145647 (Version 1)
Quarter: 2017Q4

REPORT INFORMATION
  Report Type: Spontaneous
  Country: US (occurrence: US)
  Receive Date: 20171030
  Receipt Date: 20171030
  Transmission Date: 20180321
  Serious: No
  Sender: FDA-Public Use
  Company Number: None

PATIENT
  Age: 40 Year
  Sex: Female
  Weight: 83.25 kg

DRUGS (8)
  1. SERTRALINE [Concomitant]
     Active Substance: SERTRALINE HYDROCHLORIDE
  2. ZYRTEC [Concomitant]
     Active Substance: CETIRIZINE HYDROCHLORIDE
  3. TC99M MDP [Suspect]
     Active Substance: TECHNETIUM TC-99M MEDRONATE
     Indication: BONE SCAN
     Dosage: ?          OTHER FREQUENCY:1 TIME;?
     Route: 042
     Dates: start: 20171025, end: 20171025
  4. PROBIOTIC [Concomitant]
     Active Substance: PROBIOTICS NOS
  5. D-RIBOSE [Concomitant]
     Active Substance: DIETARY SUPPLEMENT
  6. ARMOUR THYROID [Concomitant]
     Active Substance: THYROID, PORCINE
  7. OPANA ER [Concomitant]
     Active Substance: OXYMORPHONE HYDROCHLORIDE
  8. BIRTH CONTROL PILL [Concomitant]
     Active Substance: UNSPECIFIED INGREDIENT

REACTIONS (11)
  - Contrast media reaction [None]
  - Dizziness [None]
  - Nausea [None]
  - Vomiting [None]
  - Tremor [None]
  - Hyperhidrosis [None]
  - Confusional state [None]
  - Abdominal pain upper [None]
  - Impaired work ability [None]
  - Fatigue [None]
  - Bradycardia [None]

NARRATIVE: CASE EVENT DATE: 20171025
